FAERS Safety Report 6103731-0 (Version None)
Quarter: 2009Q1

REPORT INFORMATION
  Report Type: 
  Country: None (occurrence: None)
  Receive Date: 20090305
  Receipt Date: 20090225
  Transmission Date: 20090719
  Serious: Yes (Hospitalization)
  Sender: FDA-Public Use
  Company Number: PHHY2009JP03216

PATIENT
  Sex: Female
  Weight: 70 kg

DRUGS (18)
  1. FEMARA [Suspect]
     Indication: BREAST CANCER
     Dosage: 2.5 MG, QD
     Route: 048
     Dates: start: 20080125
  2. NAVELBINE [Suspect]
     Indication: BREAST CANCER
     Dosage: 40MG TWICE IN TWO WEEKS
     Route: 042
     Dates: start: 20080201, end: 20080208
  3. NAVELBINE [Suspect]
     Dosage: UNK
     Route: 042
     Dates: start: 20080222, end: 20080229
  4. NAVELBINE [Suspect]
     Dosage: UNK
     Route: 042
     Dates: start: 20080314, end: 20080321
  5. NAVELBINE [Suspect]
     Dosage: UNK
     Route: 042
     Dates: start: 20080404, end: 20080411
  6. NAVELBINE [Suspect]
     Dosage: UNK
     Route: 042
     Dates: start: 20080425, end: 20080502
  7. NAVELBINE [Suspect]
     Dosage: 30MG TWICE IN TWO WEEKS
     Route: 042
     Dates: start: 20080516, end: 20080523
  8. NAVELBINE [Suspect]
     Dosage: UNK
     Route: 042
     Dates: start: 20080613, end: 20080620
  9. NAVELBINE [Suspect]
     Dosage: UNK
     Route: 042
     Dates: start: 20080704, end: 20080711
  10. NAVELBINE [Suspect]
     Dosage: UNK
     Route: 042
     Dates: start: 20080725, end: 20080801
  11. NAVELBINE [Suspect]
     Dosage: UNK
     Route: 042
     Dates: start: 20080822, end: 20080829
  12. NAVELBINE [Suspect]
     Dosage: UNK
     Route: 042
     Dates: start: 20080912, end: 20080919
  13. NAVELBINE [Suspect]
     Dosage: UNK
     Route: 042
     Dates: start: 20081003, end: 20081010
  14. NAVELBINE [Suspect]
     Dosage: 30MG ONCE A WEEK
     Route: 042
     Dates: start: 20081024, end: 20081031
  15. NAVELBINE [Suspect]
     Dosage: UNK
     Route: 042
     Dates: start: 20081114, end: 20081114
  16. NAVELBINE [Suspect]
     Dosage: 30MG ONCE A WEEK
     Route: 042
     Dates: start: 20081128, end: 20081205
  17. NAVELBINE [Suspect]
     Dosage: UNK
     Route: 042
     Dates: start: 20081219, end: 20081226
  18. NAVELBINE [Suspect]
     Dosage: 30MG
     Route: 042
     Dates: start: 20090109, end: 20090109

REACTIONS (5)
  - CHEST X-RAY ABNORMAL [None]
  - DYSPNOEA [None]
  - INTERSTITIAL LUNG DISEASE [None]
  - LYMPHANGIOSIS CARCINOMATOSA [None]
  - OXYGEN SATURATION DECREASED [None]
